FAERS Safety Report 25328653 (Version 3)
Quarter: 2025Q4

REPORT INFORMATION
  Report Type: Spontaneous
  Country: US (occurrence: US)
  Receive Date: 20250519
  Receipt Date: 20251216
  Transmission Date: 20260118
  Serious: Yes (Hospitalization, Other)
  Sender: ALVOGEN
  Company Number: US-ALVOGEN-2025097966

PATIENT
  Age: 46 Year
  Sex: Female

DRUGS (4)
  1. FENTANYL [Suspect]
     Active Substance: FENTANYL
     Indication: Neck pain
     Dosage: 25MCG/HOUR?EXPIRATION DATE: UU-APR-2027
     Route: 062
     Dates: start: 20250101, end: 2025
  2. FENTANYL [Suspect]
     Active Substance: FENTANYL
     Indication: Neck pain
     Dosage: PRIMARY DOCTOR DECREASED THE DOSE TO 12MCG/HOUR
     Route: 062
     Dates: start: 2025, end: 20250127
  3. GABAPENTIN [Suspect]
     Active Substance: GABAPENTIN
     Indication: Product used for unknown indication
     Dosage: 600 MG 3 TIMES A DAY
  4. IRBESARTAN [Concomitant]
     Active Substance: IRBESARTAN
     Indication: Blood pressure abnormal

REACTIONS (4)
  - Anxiety [Not Recovered/Not Resolved]
  - Feeling hot [Unknown]
  - Depressed mood [Unknown]
  - Insomnia [Not Recovered/Not Resolved]

NARRATIVE: CASE EVENT DATE: 20250101
